FAERS Safety Report 21266445 (Version 2)
Quarter: 2022Q3

REPORT INFORMATION
  Report Type: Spontaneous
  Country: SA (occurrence: SA)
  Receive Date: 20220829
  Receipt Date: 20220902
  Transmission Date: 20221027
  Serious: Yes (Other)
  Sender: FDA-Public Use
  Company Number: SA-002147023-NVSC2022SA176690

PATIENT
  Age: 22 Year
  Sex: Female

DRUGS (1)
  1. XOLAIR [Suspect]
     Active Substance: OMALIZUMAB
     Indication: Chronic rhinosinusitis with nasal polyps
     Dosage: 300 MG (150MG RIGHT ARM/ 150MG LEFT ARM)
     Route: 065
     Dates: start: 20220731, end: 20220731

REACTIONS (11)
  - Asthma [Unknown]
  - Dyspnoea [Unknown]
  - Chest discomfort [Unknown]
  - Cough [Recovered/Resolved]
  - Abdominal pain [Recovering/Resolving]
  - Wheezing [Unknown]
  - Oedema [Unknown]
  - Muscle spasms [Unknown]
  - Swelling [Unknown]
  - Rash [Recovered/Resolved with Sequelae]
  - Pruritus [Recovered/Resolved with Sequelae]

NARRATIVE: CASE EVENT DATE: 20220731
